FAERS Safety Report 9825302 (Version 1)
Quarter: 2014Q1

REPORT INFORMATION
  Report Type: Spontaneous
  Country: US (occurrence: None)
  Receive Date: 20140115
  Receipt Date: 20140115
  Transmission Date: 20141002
  Serious: Yes (Hospitalization)
  Sender: FDA-Public Use
  Company Number: None

PATIENT
  Age: 78 Year
  Sex: Female
  Weight: 78 kg

DRUGS (9)
  1. TIZANIDINE [Suspect]
     Indication: MUSCULOSKELETAL STIFFNESS
     Dosage: 4 MG  PRN/AS NEEDED  ORAL?1 DOSE
     Route: 048
  2. ASPIRIN [Concomitant]
  3. CALCIUM [Concomitant]
  4. DILTIAZEM LA [Concomitant]
  5. EZETIMIBE [Concomitant]
  6. METFORMIN [Concomitant]
  7. NIACIN/LOVASTATIN [Concomitant]
  8. OLMESARTAN/HCTZ [Concomitant]
  9. MELOXICAM [Concomitant]

REACTIONS (7)
  - Vomiting [None]
  - Depressed level of consciousness [None]
  - Hyperkalaemia [None]
  - Drug hypersensitivity [None]
  - Syncope [None]
  - Bradycardia [None]
  - Hypotension [None]
